FAERS Safety Report 8604972-0 (Version None)
Quarter: 2012Q3

REPORT INFORMATION
  Report Type: 
  Country: None (occurrence: None)
  Receive Date: 20120820
  Receipt Date: 20120808
  Transmission Date: 20120928
  Serious: No
  Sender: FDA-Public Use
  Company Number: US-BAYER-2012-081904

PATIENT

DRUGS (3)
  1. ADVIL [Concomitant]
  2. ALEVE (CAPLET) [Suspect]
     Indication: HEADACHE
     Dosage: UNK
     Route: 048
  3. IBUPROFEN [Concomitant]

REACTIONS (2)
  - NASAL CONGESTION [None]
  - HEADACHE [None]
